FAERS Safety Report 17414454 (Version 4)
Quarter: 2020Q4

REPORT INFORMATION
  Report Type: Spontaneous
  Country: US (occurrence: US)
  Receive Date: 20200213
  Receipt Date: 20201231
  Transmission Date: 20210113
  Serious: No
  Sender: FDA-Public Use
  Company Number: US-PFIZER INC-2020064331

PATIENT
  Age: 47 Year
  Sex: Male

DRUGS (1)
  1. SUTENT [Suspect]
     Active Substance: SUNITINIB MALATE
     Indication: RENAL CANCER
     Dosage: 50 MG, CYCLIC (WITH OR WITHOUT FOOD FOR 4 WEEKS ON TREATMENT FOLLOWED BY 2 WEEKS OFF)(TAKE 1 CAPSULE
     Route: 048
     Dates: start: 201911

REACTIONS (6)
  - Taste disorder [Unknown]
  - Diarrhoea [Unknown]
  - Hair colour changes [Unknown]
  - Ageusia [Unknown]
  - Thyroid disorder [Unknown]
  - Product dose omission issue [Unknown]
